FAERS Safety Report 18874245 (Version 1)
Quarter: 2021Q1

REPORT INFORMATION
  Report Type: Report from Study
  Country: US (occurrence: US)
  Receive Date: 20210210
  Receipt Date: 20210210
  Transmission Date: 20210420
  Serious: Yes (Hospitalization)
  Sender: FDA-Public Use
  Company Number: US-GILEAD-2021-0515856

PATIENT
  Age: 23 Year
  Sex: Female

DRUGS (31)
  1. AZITHROMYCIN ANHYDROUS. [Concomitant]
     Active Substance: AZITHROMYCIN ANHYDROUS
  2. FLONASE ALLERGY RELIEF [Concomitant]
     Active Substance: FLUTICASONE PROPIONATE
  3. ZYRTEC [Concomitant]
     Active Substance: CETIRIZINE HYDROCHLORIDE
  4. AMOXICILLIN + CLAV. POTASSIUM [Concomitant]
     Active Substance: AMOXICILLIN\CLAVULANATE POTASSIUM
  5. CREON [Concomitant]
     Active Substance: PANCRELIPASE AMYLASE\PANCRELIPASE LIPASE\PANCRELIPASE PROTEASE
  6. MULTIVITAMINS;MINERALS [Concomitant]
     Active Substance: MINERALS\VITAMINS
  7. PANTOPRAZOLE [Concomitant]
     Active Substance: PANTOPRAZOLE
  8. PEG 3350 [Concomitant]
     Active Substance: POLYETHYLENE GLYCOL 3350
  9. TRIKAFTA [Concomitant]
     Active Substance: ELEXACAFTOR\IVACAFTOR\TEZACAFTOR
  10. ALLEGRA ALLERGY [Concomitant]
     Active Substance: FEXOFENADINE HYDROCHLORIDE
  11. CULTURELLE [Concomitant]
     Active Substance: LACTOBACILLUS RHAMNOSUS
  12. JANUVIA [Concomitant]
     Active Substance: SITAGLIPTIN PHOSPHATE
  13. MONTELUKAST [Concomitant]
     Active Substance: MONTELUKAST SODIUM
  14. SYMBICORT [Concomitant]
     Active Substance: BUDESONIDE\FORMOTEROL FUMARATE DIHYDRATE
  15. TOBRAMYCIN. [Concomitant]
     Active Substance: TOBRAMYCIN
  16. URSODIOL. [Concomitant]
     Active Substance: URSODIOL
  17. VITAMIN C [Concomitant]
     Active Substance: ASCORBIC ACID
  18. AZTREONAM LYSINE [Suspect]
     Active Substance: AZTREONAM LYSINE
     Indication: CYSTIC FIBROSIS LUNG
     Dosage: 75 MG, TID
     Route: 055
     Dates: start: 20210123
  19. AZELASTINE. [Concomitant]
     Active Substance: AZELASTINE HYDROCHLORIDE
  20. GENTAMICIN. [Concomitant]
     Active Substance: GENTAMICIN
  21. METHYLPRED [Concomitant]
     Active Substance: METHYLPREDNISOLONE
  22. SINGULAIR [Concomitant]
     Active Substance: MONTELUKAST SODIUM
  23. BUDESONIDE;FORMOTEROL [Concomitant]
     Active Substance: BUDESONIDE\FORMOTEROL
  24. SODIUM CHLORIDE. [Concomitant]
     Active Substance: SODIUM CHLORIDE
  25. TRESIBA [Concomitant]
     Active Substance: INSULIN DEGLUDEC
  26. VENTOLIN HFA [Concomitant]
     Active Substance: ALBUTEROL SULFATE
  27. OXYCODONE [Concomitant]
     Active Substance: OXYCODONE
  28. PULMOZYME [Concomitant]
     Active Substance: DORNASE ALFA
  29. SMZ?TMP DS [Concomitant]
     Active Substance: SULFAMETHOXAZOLE\TRIMETHOPRIM
  30. ALBUTEROL [SALBUTAMOL SULFATE] [Concomitant]
     Active Substance: ALBUTEROL SULFATE
  31. BIOTIN [Concomitant]
     Active Substance: BIOTIN

REACTIONS (2)
  - Cough [Unknown]
  - Cystic fibrosis respiratory infection suppression [Unknown]

NARRATIVE: CASE EVENT DATE: 20210127
